FAERS Safety Report 6391247-6 (Version None)
Quarter: 2009Q4

REPORT INFORMATION
  Report Type: 
  Country: None (occurrence: None)
  Receive Date: 20091007
  Receipt Date: 20090925
  Transmission Date: 20100525
  Serious: Yes (Other)
  Sender: FDA-Public Use
  Company Number: US-MYLANLABS-2009S1017008

PATIENT
  Age: 64 Year
  Sex: Male

DRUGS (6)
  1. PHENYTOIN SODIUM [Suspect]
     Indication: CONVULSION
     Route: 048
     Dates: start: 20060601, end: 20090924
  2. LANOXIN [Concomitant]
  3. DILTIAZEM [Concomitant]
  4. QUINAPRIL [Concomitant]
  5. CARVEDILOL [Concomitant]
  6. WARFARIN SODIUM [Concomitant]

REACTIONS (3)
  - ANTICONVULSANT DRUG LEVEL BELOW THERAPEUTIC [None]
  - CONVULSION [None]
  - DRUG INEFFECTIVE [None]
